FAERS Safety Report 20903549 (Version 1)
Quarter: 2022Q2

REPORT INFORMATION
  Report Type: Spontaneous
  Country: US (occurrence: US)
  Receive Date: 20220602
  Receipt Date: 20220602
  Transmission Date: 20220721
  Serious: Yes (Hospitalization)
  Sender: FDA-Public Use
  Company Number: US-SUN PHARMACEUTICAL INDUSTRIES LTD-2022R1-338776

PATIENT
  Age: 89 Year
  Sex: Female

DRUGS (4)
  1. LORAZEPAM [Interacting]
     Active Substance: LORAZEPAM
     Indication: Mental status changes
     Dosage: UNK (2 MG)
     Route: 065
  2. OLANZAPINE [Interacting]
     Active Substance: OLANZAPINE
     Indication: Mental status changes
     Dosage: UNK (10 MG)
     Route: 065
  3. DROPERIDOL [Interacting]
     Active Substance: DROPERIDOL
     Indication: Mental status changes
     Dosage: UNK (1.25 MG)
     Route: 065
  4. DROPERIDOL [Interacting]
     Active Substance: DROPERIDOL
     Dosage: UNK (5 MG)
     Route: 065

REACTIONS (3)
  - Extrapyramidal disorder [Recovering/Resolving]
  - Therapy non-responder [Unknown]
  - Drug interaction [Unknown]
